FAERS Safety Report 8512503 (Version 2)
Quarter: 2012Q4

REPORT INFORMATION
  Report Type: 
  Country: US (occurrence: US)
  Receive Date: 20120413
  Receipt Date: 20121129
  Transmission Date: 20130627
  Serious: No
  Sender: FDA-Public Use
  Company Number: US-ASTRAZENECA-2011SE35760

PATIENT
  Age: 85 Year
  Sex: Female

DRUGS (2)
  1. NEXIUM [Suspect]
     Route: 048
     Dates: start: 200610
  2. SYMBICORT PMDI [Suspect]
     Route: 055

REACTIONS (2)
  - Parkinson^s disease [Unknown]
  - Glaucoma [Unknown]
